FAERS Safety Report 5554953-9 (Version None)
Quarter: 2007Q4

REPORT INFORMATION
  Report Type: 
  Country: None (occurrence: None)
  Receive Date: 20071213
  Receipt Date: 20071211
  Transmission Date: 20080405
  Serious: Yes (Other)
  Sender: FDA-Public Use
  Company Number: DE-ASTRAZENECA-2007PK02607

PATIENT
  Sex: Female

DRUGS (2)
  1. PROPOFOL [Suspect]
  2. FENTANYL [Concomitant]

REACTIONS (3)
  - HEPATITIS TOXIC [None]
  - THROMBOPHLEBITIS [None]
  - THROMBOSIS [None]
